FAERS Safety Report 14590426 (Version 1)
Quarter: 2018Q1

REPORT INFORMATION
  Report Type: Spontaneous
  Country: PL (occurrence: PL)
  Receive Date: 20180302
  Receipt Date: 20180302
  Transmission Date: 20180509
  Serious: Yes (Other)
  Sender: FDA-Public Use
  Company Number: PL-CIPLA LTD.-2018PL07899

PATIENT

DRUGS (9)
  1. FOLIC ACID. [Suspect]
     Active Substance: FOLIC ACID
     Indication: ANAEMIA
     Dosage: UNK
     Route: 048
     Dates: start: 20140701, end: 20140818
  2. FUROSEMIDE. [Suspect]
     Active Substance: FUROSEMIDE
     Indication: OEDEMA
     Dosage: UNK
     Route: 048
     Dates: start: 20140701, end: 20140818
  3. PROURSAN [Suspect]
     Active Substance: URSODIOL
     Indication: HEPATIC CIRRHOSIS
     Dosage: UNK
     Route: 048
     Dates: start: 20140701, end: 20140818
  4. IBUPAR /00109201/ [Suspect]
     Active Substance: IBUPROFEN
     Indication: PAIN OF SKIN
     Dosage: UNK
     Route: 048
     Dates: start: 20140817, end: 20140817
  5. ESSELIV MAX [Concomitant]
     Indication: HEPATIC CIRRHOSIS
     Dosage: UNK
     Route: 048
     Dates: start: 20140810, end: 20140818
  6. SPIRONOL [Suspect]
     Active Substance: SPIRONOLACTONE
     Indication: OEDEMA
     Dosage: UNK
     Route: 048
     Dates: start: 20140701, end: 20140818
  7. ENCORTON                           /00044701/ [Suspect]
     Active Substance: PREDNISONE
     Indication: HEPATITIS
     Dosage: UNK
     Route: 048
     Dates: start: 20140701, end: 20140818
  8. NOLPAZA [Suspect]
     Active Substance: PANTOPRAZOLE SODIUM
     Indication: HEPATIC CIRRHOSIS
     Dosage: UNK
     Route: 048
     Dates: start: 20140701, end: 20140818
  9. VITAMIN E [Suspect]
     Active Substance: .ALPHA.-TOCOPHEROL
     Indication: PRODUCT USED FOR UNKNOWN INDICATION
     Dosage: UNK
     Route: 048
     Dates: start: 20140701, end: 20140818

REACTIONS (3)
  - Erythema [Recovering/Resolving]
  - Skin haemorrhage [Recovering/Resolving]
  - Blood blister [Recovering/Resolving]

NARRATIVE: CASE EVENT DATE: 20140812
